FAERS Safety Report 5001947-8 (Version None)
Quarter: 2006Q2

REPORT INFORMATION
  Report Type: 
  Country: None (occurrence: None)
  Receive Date: 20060515
  Receipt Date: 20051003
  Transmission Date: 20061013
  Serious: Yes (Hospitalization, Disabling)
  Sender: FDA-Public Use
  Company Number: US-MERCK-0510USA02918

PATIENT
  Age: 49 Year
  Sex: Male
  Weight: 106 kg

DRUGS (5)
  1. VIOXX [Suspect]
     Indication: ARTHRALGIA
     Route: 048
     Dates: start: 20010901, end: 20031003
  2. VIOXX [Suspect]
     Route: 048
     Dates: start: 20010901, end: 20031003
  3. VIOXX [Suspect]
     Route: 048
     Dates: start: 20040227, end: 20040930
  4. VIOXX [Suspect]
     Route: 048
     Dates: start: 20040227, end: 20040930
  5. TYLENOL (CAPLET) [Concomitant]
     Route: 065

REACTIONS (15)
  - ANGINA UNSTABLE [None]
  - ANXIETY [None]
  - ASTHMA [None]
  - BASAL CELL CARCINOMA [None]
  - BRONCHITIS [None]
  - CELLULITIS [None]
  - CHEST DISCOMFORT [None]
  - CORONARY ARTERY OCCLUSION [None]
  - DEPRESSION [None]
  - DYSPNOEA [None]
  - MYOCARDIAL INFARCTION [None]
  - OEDEMA PERIPHERAL [None]
  - POLYTRAUMATISM [None]
  - SKIN LESION EXCISION [None]
  - THROMBOSIS [None]
